FAERS Safety Report 26059232 (Version 1)
Quarter: 2025Q4

REPORT INFORMATION
  Report Type: Report from Study
  Country: US (occurrence: US)
  Receive Date: 20251118
  Receipt Date: 20251118
  Transmission Date: 20260119
  Serious: Yes (Hospitalization, Other)
  Sender: TAKEDA
  Company Number: US-TAKEDA-2025TUS087704

PATIENT
  Age: 27 Year
  Sex: Female

DRUGS (5)
  1. VEDOLIZUMAB [Suspect]
     Active Substance: VEDOLIZUMAB
     Indication: Product used for unknown indication
     Dosage: UNK
  2. VEDOLIZUMAB [Suspect]
     Active Substance: VEDOLIZUMAB
     Indication: Product used for unknown indication
     Dosage: 108 MILLIGRAM, Q2WEEKS
  3. VEDOLIZUMAB [Suspect]
     Active Substance: VEDOLIZUMAB
  4. DUPIXENT [Suspect]
     Active Substance: DUPILUMAB
     Indication: Product used for unknown indication
     Dosage: UNK
  5. LITFULO [Suspect]
     Active Substance: RITLECITINIB TOSYLATE
     Indication: Product used for unknown indication
     Dosage: UNK

REACTIONS (15)
  - Faecaloma [Unknown]
  - Colitis [Unknown]
  - Chest pain [Unknown]
  - Alopecia [Unknown]
  - Proctitis [Unknown]
  - Oesophagitis [Unknown]
  - Hypoaesthesia [Unknown]
  - Pain [Unknown]
  - Abdominal pain [Unknown]
  - Asthenia [Unknown]
  - Night sweats [Unknown]
  - Paraesthesia [Unknown]
  - Vomiting [Unknown]
  - Rash [Unknown]
  - Pyrexia [Unknown]
